FAERS Safety Report 25877139 (Version 1)
Quarter: 2025Q4

REPORT INFORMATION
  Report Type: Spontaneous
  Country: EU (occurrence: EU)
  Receive Date: 20251003
  Receipt Date: 20251003
  Transmission Date: 20260117
  Serious: Yes (Death, Hospitalization, Other)
  Sender: AUROBINDO
  Company Number: EU-AEMPS-1751002

PATIENT
  Age: 84 Year
  Sex: Female

DRUGS (1)
  1. LEVOFLOXACIN [Suspect]
     Active Substance: LEVOFLOXACIN
     Indication: Arthritis infective
     Dosage: 750 MILLIGRAM, ONCE A DAY
     Route: 048
     Dates: start: 20250709, end: 20250811

REACTIONS (2)
  - Clostridium difficile colitis [Fatal]
  - Septic shock [Fatal]

NARRATIVE: CASE EVENT DATE: 20250809
